FAERS Safety Report 5903938-9 (Version None)
Quarter: 2008Q3

REPORT INFORMATION
  Report Type: 
  Country: None (occurrence: None)
  Receive Date: 20080930
  Receipt Date: 20080917
  Transmission Date: 20090109
  Serious: Yes (Hospitalization)
  Sender: FDA-Public Use
  Company Number: JP-ELI_LILLY_AND_COMPANY-JP200809005247

PATIENT
  Age: 28 Year
  Sex: Female

DRUGS (5)
  1. ZYPREXA [Suspect]
     Indication: SCHIZOPHRENIA
     Dosage: 15 MG, DAILY (1/D)
     Route: 048
  2. ZYPREXA [Suspect]
     Dosage: 2.5 MG, DAILY (1/D)
     Route: 048
  3. ZYPREXA [Suspect]
     Dosage: 20 MG, DAILY (1/D)
     Route: 048
     Dates: start: 20080101
  4. RISPERDAL [Concomitant]
     Indication: SCHIZOPHRENIA
     Route: 048
  5. ABILIFY [Concomitant]
     Indication: SCHIZOPHRENIA
     Route: 048

REACTIONS (7)
  - FEELING ABNORMAL [None]
  - HALLUCINATION, AUDITORY [None]
  - HOSPITALISATION [None]
  - INAPPROPRIATE AFFECT [None]
  - LOSS OF CONSCIOUSNESS [None]
  - PYREXIA [None]
  - WEIGHT INCREASED [None]
